FAERS Safety Report 8438247-X (Version None)
Quarter: 2012Q2

REPORT INFORMATION
  Report Type: 
  Country: None (occurrence: None)
  Receive Date: 20120614
  Receipt Date: 20120606
  Transmission Date: 20120825
  Serious: Yes (Hospitalization, Other)
  Sender: FDA-Public Use
  Company Number: US-BAXTER-2012BH006906

PATIENT
  Sex: Male

DRUGS (3)
  1. EXTRANEAL [Suspect]
     Indication: PERITONEAL DIALYSIS
     Route: 033
  2. DIANEAL [Suspect]
     Indication: PERITONEAL DIALYSIS
     Route: 033
  3. EXTRANEAL [Suspect]
     Route: 033

REACTIONS (6)
  - DRUG HYPERSENSITIVITY [None]
  - CONDITION AGGRAVATED [None]
  - ULTRAFILTRATION FAILURE [None]
  - SKIN DEGENERATIVE DISORDER [None]
  - URTICARIA [None]
  - RASH GENERALISED [None]
